FAERS Safety Report 5277486-6 (Version None)
Quarter: 2007Q1

REPORT INFORMATION
  Report Type: 
  Country: None (occurrence: None)
  Receive Date: 20061213
  Receipt Date: 20040602
  Transmission Date: 20070707
  Serious: No
  Sender: FDA-Public Use
  Company Number: 2004UW11493

PATIENT
  Age: 50 Year
  Sex: Male

DRUGS (2)
  1. SEROQUEL [Suspect]
  2. HALDOL [Concomitant]

REACTIONS (1)
  - NEUROLEPTIC MALIGNANT SYNDROME [None]
